FAERS Safety Report 6173281-4 (Version None)
Quarter: 2009Q2

REPORT INFORMATION
  Report Type: 
  Country: None (occurrence: None)
  Receive Date: 20090430
  Receipt Date: 20090423
  Transmission Date: 20091009
  Serious: Yes (Other)
  Sender: FDA-Public Use
  Company Number: US-ABBOTT-09P-163-0569656-00

PATIENT
  Sex: Female
  Weight: 88.984 kg

DRUGS (1)
  1. HUMIRA [Suspect]
     Indication: PSORIASIS
     Route: 048
     Dates: start: 20081002, end: 20090312

REACTIONS (3)
  - ARTHRALGIA [None]
  - JOINT SWELLING [None]
  - LUPUS-LIKE SYNDROME [None]
